FAERS Safety Report 19651254 (Version 1)
Quarter: 2021Q3

REPORT INFORMATION
  Report Type: Spontaneous
  Country: ES (occurrence: ES)
  Receive Date: 20210803
  Receipt Date: 20210803
  Transmission Date: 20211014
  Serious: Yes (Hospitalization)
  Sender: FDA-Public Use
  Company Number: ES-TEVA-2021-ES-1938479

PATIENT
  Age: 84 Year
  Sex: Male

DRUGS (3)
  1. ENALAPRIL (2142A) [Suspect]
     Active Substance: ENALAPRIL
     Indication: HYPERTENSION
     Dosage: 30 MG
     Route: 048
     Dates: start: 20210416, end: 20210625
  2. BISOPROLOL NORMON 2,5 MG COMPRIMIDOS RECUBIERTOS CON PELICULA EFG , 28 [Concomitant]
     Active Substance: BISOPROLOL
     Indication: ATRIAL FIBRILLATION
     Dosage: 1.25 MG
     Route: 048
     Dates: start: 20210416
  3. SINTROM [Concomitant]
     Active Substance: ACENOCOUMAROL
     Indication: ATRIAL FIBRILLATION
     Route: 048
     Dates: start: 20131115

REACTIONS (1)
  - Pancreatitis acute [Recovered/Resolved]

NARRATIVE: CASE EVENT DATE: 20210624
